FAERS Safety Report 4761799-8 (Version None)
Quarter: 2005Q3

REPORT INFORMATION
  Report Type: 
  Country: None (occurrence: None)
  Receive Date: 20050906
  Receipt Date: 20050831
  Transmission Date: 20060218
  Serious: Yes (Life-Threatening)
  Sender: FDA-Public Use
  Company Number: PHHO2005JP13720

PATIENT
  Age: 69 Year
  Sex: Male

DRUGS (6)
  1. TENORMIN [Suspect]
     Indication: HYPERTENSION
     Dosage: 25 MG, QD
     Route: 048
     Dates: start: 20030425, end: 20041007
  2. NORVASC [Suspect]
     Indication: HYPERTENSION
     Dosage: 7.5 MG, QD
     Route: 048
     Dates: start: 20030425, end: 20041007
  3. MEVALOTIN [Suspect]
     Indication: HYPERTENSION
     Dosage: 10 MG, QD
     Route: 048
     Dates: start: 20030425, end: 20041007
  4. DIOVAN [Suspect]
     Indication: HYPERTENSION
     Dosage: 80 MG, QD
     Route: 048
     Dates: start: 20030704, end: 20041007
  5. PROTECADIN [Concomitant]
     Indication: GASTRITIS
  6. MAGNESIUM OXIDE [Concomitant]
     Indication: CONSTIPATION

REACTIONS (5)
  - ACUTE MYOCARDIAL INFARCTION [None]
  - CHEST DISCOMFORT [None]
  - CHEST PAIN [None]
  - CORONARY ANGIOPLASTY [None]
  - CORONARY ARTERY OCCLUSION [None]
